FAERS Safety Report 5117044-7 (Version None)
Quarter: 2006Q3

REPORT INFORMATION
  Report Type: 
  Country: None (occurrence: None)
  Receive Date: 20060925
  Receipt Date: 20060913
  Transmission Date: 20061208
  Serious: Yes (Disabling, Other)
  Sender: FDA-Public Use
  Company Number: 2006112239

PATIENT

DRUGS (1)
  1. CELEBREX [Suspect]

REACTIONS (2)
  - MULTI-ORGAN FAILURE [None]
  - PARALYSIS [None]
